FAERS Safety Report 4605374-4 (Version None)
Quarter: 2005Q1

REPORT INFORMATION
  Report Type: 
  Country: None (occurrence: None)
  Receive Date: 20050310
  Receipt Date: 20040608
  Transmission Date: 20050727
  Serious: No
  Sender: FDA-Public Use
  Company Number: US-BRISTOL-MYERS SQUIBB COMPANY-12608345

PATIENT
  Age: 37 Year
  Sex: Female

DRUGS (1)
  1. VAGISTAT-1 [Suspect]
     Indication: FUNGAL INFECTION
     Dosage: 1 APPLICATOR
     Route: 067
     Dates: start: 20040607, end: 20040607

REACTIONS (4)
  - GENITAL PRURITUS FEMALE [None]
  - PREGNANCY [None]
  - VAGINAL BURNING SENSATION [None]
  - VAGINAL SWELLING [None]
